FAERS Safety Report 15821669 (Version 1)
Quarter: 2019Q1

REPORT INFORMATION
  Report Type: Spontaneous
  Country: US (occurrence: US)
  Receive Date: 20190114
  Receipt Date: 20190114
  Transmission Date: 20190417
  Serious: Yes (Hospitalization, Other)
  Sender: FDA-Public Use
  Company Number: US-ABBVIE-19K-163-2620490-00

PATIENT
  Age: 13 Year
  Sex: Male
  Weight: 65.9 kg

DRUGS (1)
  1. HUMIRA [Suspect]
     Active Substance: ADALIMUMAB
     Indication: OSTEOMYELITIS CHRONIC
     Route: 058
     Dates: start: 201110, end: 201810

REACTIONS (4)
  - Off label use [Unknown]
  - Mass [Unknown]
  - Abscess neck [Unknown]
  - Swelling face [Unknown]

NARRATIVE: CASE EVENT DATE: 201110
